FAERS Safety Report 6676875-2 (Version None)
Quarter: 2010Q2

REPORT INFORMATION
  Report Type: 
  Country: None (occurrence: None)
  Receive Date: 20100412
  Receipt Date: 20091211
  Transmission Date: 20101027
  Serious: Yes (Other)
  Sender: FDA-Public Use
  Company Number: US-SANOFI-AVENTIS-200919267US

PATIENT
  Age: 51 Year
  Sex: Male

DRUGS (2)
  1. SOLOSTAR [Suspect]
     Dosage: DOSE:42 UNIT(S)
     Route: 058
     Dates: start: 20020101
  2. LANTUS [Suspect]

REACTIONS (2)
  - DEVICE MALFUNCTION [None]
  - OVERDOSE [None]
